FAERS Safety Report 7627142-1 (Version None)
Quarter: 2011Q3

REPORT INFORMATION
  Report Type: 
  Country: None (occurrence: None)
  Receive Date: 20110721
  Receipt Date: 20110712
  Transmission Date: 20111222
  Serious: Yes (Other)
  Sender: FDA-Public Use
  Company Number: US-CEPHALON-2010002804

PATIENT
  Sex: Female
  Weight: 89 kg

DRUGS (1)
  1. NUVIGIL [Suspect]
     Indication: SOMNOLENCE
     Route: 048
     Dates: end: 20100422

REACTIONS (12)
  - OEDEMA MOUTH [None]
  - SWOLLEN TONGUE [None]
  - PARAESTHESIA ORAL [None]
  - DYSPNOEA [None]
  - LIP SWELLING [None]
  - ASTHENIA [None]
  - TONGUE BLISTERING [None]
  - ATELECTASIS [None]
  - STOMATITIS [None]
  - DRUG PRESCRIBING ERROR [None]
  - HYPOPHAGIA [None]
  - MEDICATION ERROR [None]
